FAERS Safety Report 15343831 (Version 1)
Quarter: 2018Q3

REPORT INFORMATION
  Report Type: Spontaneous
  Country: NL (occurrence: NL)
  Receive Date: 20180903
  Receipt Date: 20180903
  Transmission Date: 20181010
  Serious: Yes (Other)
  Sender: FDA-Public Use
  Company Number: NL-009507513-1808NLD012321

PATIENT
  Age: 70 Year
  Sex: Male

DRUGS (5)
  1. EZETIMIBE. [Suspect]
     Active Substance: EZETIMIBE
     Indication: HYPERCHOLESTEROLAEMIA
     Dosage: 1 TIME A DAY 1 TABLET
     Route: 048
     Dates: start: 20131120
  2. PANTOPRAZOLE [Concomitant]
     Active Substance: PANTOPRAZOLE
     Dosage: 1.1T
  3. ATORVASTATIN CALCIUM. [Concomitant]
     Active Substance: ATORVASTATIN CALCIUM
     Dosage: 1.1T
  4. NAPROXEN. [Concomitant]
     Active Substance: NAPROXEN
     Dosage: IF NECESSARY 2.1T
  5. ASPIRIN. [Concomitant]
     Active Substance: ASPIRIN
     Dosage: 1.1T

REACTIONS (3)
  - Headache [Unknown]
  - Therapeutic response unexpected [Unknown]
  - Somnolence [Unknown]

NARRATIVE: CASE EVENT DATE: 20180524
